FAERS Safety Report 24067734 (Version 1)
Quarter: 2024Q3

REPORT INFORMATION
  Report Type: Spontaneous
  Country: ES (occurrence: ES)
  Receive Date: 20240710
  Receipt Date: 20240710
  Transmission Date: 20241017
  Serious: Yes (Other)
  Sender: CELLTRION
  Company Number: ES-CELLTRION INC.-2024ES016395

PATIENT

DRUGS (15)
  1. RITUXIMAB [Suspect]
     Active Substance: RITUXIMAB
     Indication: B-cell lymphoma
     Dosage: 750 MG, EVERY 1 CYCLE
     Route: 042
     Dates: start: 20210625, end: 20210625
  2. RITUXIMAB [Suspect]
     Active Substance: RITUXIMAB
     Dosage: 750 MG, EVERY 1 CYCLE
     Route: 042
     Dates: start: 20210604, end: 20210604
  3. RITUXIMAB [Suspect]
     Active Substance: RITUXIMAB
     Dosage: 750 MG, EVERY 1 CYCLE
     Route: 042
     Dates: start: 20210811, end: 20210811
  4. ETOPOSIDE [Suspect]
     Active Substance: ETOPOSIDE
     Indication: B-cell lymphoma
     Dosage: 600 MG, EVERY 1 CYCLE
     Route: 042
     Dates: start: 20210811, end: 20210813
  5. ETOPOSIDE [Suspect]
     Active Substance: ETOPOSIDE
     Dosage: 600 MG, EVERY 1 CYCLE
     Route: 042
     Dates: start: 20210604, end: 20210606
  6. ETOPOSIDE [Suspect]
     Active Substance: ETOPOSIDE
     Dosage: 600 MG, EVERY 1 CYCLE
     Route: 042
     Dates: start: 20210625, end: 20210627
  7. CARBOPLATIN [Suspect]
     Active Substance: CARBOPLATIN
     Indication: B-cell lymphoma
     Dosage: 625 MG, EVERY 1 CYCLE
     Route: 042
     Dates: start: 20210626, end: 20210626
  8. CARBOPLATIN [Suspect]
     Active Substance: CARBOPLATIN
     Dosage: 625 MG, EVERY 1 CYCLE
     Route: 042
     Dates: start: 20210812, end: 20210812
  9. CARBOPLATIN [Suspect]
     Active Substance: CARBOPLATIN
     Dosage: 738 MG, EVERY 1 CYCLE
     Route: 042
     Dates: start: 20210605, end: 20210605
  10. IFOSFAMIDE [Suspect]
     Active Substance: IFOSFAMIDE
     Indication: B-cell lymphoma
     Dosage: 1000 MG, EVERY 1 CYCLE
     Route: 042
     Dates: start: 20210626, end: 20210626
  11. IFOSFAMIDE [Suspect]
     Active Substance: IFOSFAMIDE
     Dosage: 1000 MG, EVERY 1 CYCLE
     Route: 042
     Dates: start: 20210605, end: 20210605
  12. IFOSFAMIDE [Suspect]
     Active Substance: IFOSFAMIDE
     Dosage: 750 MG, EVERY 1 CYCLE
     Route: 042
     Dates: start: 20210812, end: 20210812
  13. POLATUZUMAB VEDOTIN [Suspect]
     Active Substance: POLATUZUMAB VEDOTIN
     Indication: B-cell lymphoma
     Dosage: 227 MG, EVERY 1 CYCLE
     Route: 042
     Dates: start: 20210625, end: 20210625
  14. POLATUZUMAB VEDOTIN [Suspect]
     Active Substance: POLATUZUMAB VEDOTIN
     Dosage: 227 MG, EVERY 1 CYCLE
     Route: 042
     Dates: start: 20210604, end: 20210604
  15. POLATUZUMAB VEDOTIN [Suspect]
     Active Substance: POLATUZUMAB VEDOTIN
     Dosage: 227 MG, EVERY 1 CYCLE
     Route: 042
     Dates: start: 20210811, end: 20210811

REACTIONS (2)
  - Ejection fraction decreased [Recovered/Resolved]
  - Cardiotoxicity [Recovered/Resolved]

NARRATIVE: CASE EVENT DATE: 20210701
